FAERS Safety Report 4353090-9 (Version None)
Quarter: 2004Q2

REPORT INFORMATION
  Report Type: 
  Country: None (occurrence: None)
  Receive Date: 20040429
  Receipt Date: 20040416
  Transmission Date: 20050107
  Serious: Yes (Hospitalization)
  Sender: FDA-Public Use
  Company Number: 2003180259FR

PATIENT
  Age: 9 Year
  Sex: Male
  Weight: 32.2 kg

DRUGS (4)
  1. GENOTROPIN [Suspect]
     Indication: RENAL FAILURE CHRONIC
     Dosage: 11 MG, WEEKLY, UNK; 10.8 MG, UNK, SUBCUTANEOUS
     Route: 059
     Dates: start: 20020204
  2. OSTRAM (CALCIUM PHOSPHATE) [Concomitant]
  3. ORACILLINE [Concomitant]
  4. COUMADIN [Concomitant]

REACTIONS (9)
  - APPENDICITIS [None]
  - ASTHMA [None]
  - BLOOD PRESSURE DIASTOLIC DECREASED [None]
  - CHILLS [None]
  - GASTROENTERITIS [None]
  - MALAISE [None]
  - PLEURAL EFFUSION [None]
  - PYREXIA [None]
  - VOMITING [None]
